FAERS Safety Report 4366798-6 (Version None)
Quarter: 2004Q2

REPORT INFORMATION
  Report Type: 
  Country: None (occurrence: None)
  Receive Date: 20040528
  Receipt Date: 20040520
  Transmission Date: 20050107
  Serious: Yes (Other)
  Sender: FDA-Public Use
  Company Number: US-JNJFOC-20040505006

PATIENT
  Sex: Male
  Weight: 34.7 kg

DRUGS (22)
  1. CISAPRIDE [Suspect]
     Route: 049
     Dates: start: 20030709, end: 20040504
  2. CISAPRIDE [Suspect]
     Route: 049
     Dates: start: 20030709, end: 20040504
  3. BACLOFEN [Concomitant]
     Route: 049
  4. RANITIDINE [Concomitant]
     Dosage: 6ML/TID
     Route: 049
  5. CARBAMAZEPINE [Concomitant]
     Dosage: 7ML/TID  5ML
     Route: 049
  6. CHLORAL HYDRATE [Concomitant]
     Dosage: 5ML/QHS PM  5ML
     Route: 049
  7. DIAZEPAM [Concomitant]
     Dosage: 5ML / TID
     Route: 049
  8. LEUPRON [Concomitant]
     Indication: PUBERTY
     Dosage: Q-4 MONTHS
  9. LORATADINE [Concomitant]
     Indication: SEASONAL ALLERGY
     Dosage: 3 MG QHS PRN
     Route: 049
  10. ROBITUSSIN DM [Concomitant]
  11. ROBITUSSIN DM [Concomitant]
  12. ROBITUSSIN DM [Concomitant]
     Indication: COUGH
     Dosage: PRN 10CC Q-4/6H
  13. ACETAMINOPHEN [Concomitant]
     Dosage: PRN
  14. IBUPROFEN [Concomitant]
     Dosage: PRN
     Route: 049
  15. MAALOX [Concomitant]
     Route: 049
     Dates: start: 20030810
  16. MAALOX [Concomitant]
     Dosage: Q DAY PRN
     Route: 049
     Dates: start: 20030810
  17. LACRILUBE [Concomitant]
  18. LACRILUBE [Concomitant]
  19. LACRILUBE [Concomitant]
     Dosage: QHS
  20. PYRILAMINE TANNATE [Concomitant]
     Indication: SINUSITIS
     Route: 049
  21. MICONAZOLE NITRATE [Concomitant]
     Indication: FUNGAL INFECTION
     Dates: start: 20040401
  22. METOCLOPRAMIDE HCL [Concomitant]
     Dates: start: 20040505

REACTIONS (1)
  - ELECTROCARDIOGRAM QT CORRECTED INTERVAL PROLONGED [None]
